FAERS Safety Report 6508550-9 (Version None)
Quarter: 2009Q4

REPORT INFORMATION
  Report Type: 
  Country: None (occurrence: None)
  Receive Date: 20091221
  Receipt Date: 20081113
  Transmission Date: 20100525
  Serious: No
  Sender: FDA-Public Use
  Company Number: US-ASTRAZENECA-2008UW25421

PATIENT
  Age: 47 Year
  Sex: Male
  Weight: 76.2 kg

DRUGS (4)
  1. CRESTOR [Suspect]
     Indication: BLOOD CHOLESTEROL INCREASED
     Route: 048
     Dates: start: 20081112
  2. AZITHROMYCIN [Concomitant]
  3. ATIVAN [Concomitant]
  4. ASPIRIN [Concomitant]

REACTIONS (1)
  - HYPOAESTHESIA ORAL [None]
